FAERS Safety Report 21687262 (Version 1)
Quarter: 2022Q4

REPORT INFORMATION
  Report Type: Report from Study
  Country: DE (occurrence: DE)
  Receive Date: 20221206
  Receipt Date: 20221206
  Transmission Date: 20230113
  Serious: Yes (Other)
  Sender: FDA-Public Use
  Company Number: DE-SA-SAC20221201000846

PATIENT
  Age: 72 Year
  Sex: Male
  Weight: 80 kg

DRUGS (8)
  1. ISATUXIMAB [Suspect]
     Active Substance: ISATUXIMAB
     Indication: Plasma cell myeloma
     Dosage: 800 MG
     Route: 042
     Dates: start: 20190902, end: 20190902
  2. ISATUXIMAB [Suspect]
     Active Substance: ISATUXIMAB
     Dosage: 800 MG
     Route: 042
     Dates: start: 20221102, end: 20221102
  3. CARFILZOMIB [Suspect]
     Active Substance: CARFILZOMIB
     Indication: Plasma cell myeloma
     Dosage: 140 MG
     Route: 042
     Dates: start: 20190902, end: 20190902
  4. CARFILZOMIB [Suspect]
     Active Substance: CARFILZOMIB
     Dosage: 140 MG
     Route: 042
     Dates: start: 20221102, end: 20221102
  5. LENALIDOMIDE [Suspect]
     Active Substance: LENALIDOMIDE
     Indication: Plasma cell myeloma
     Dosage: 15 MG
     Route: 048
     Dates: start: 20190902, end: 20190902
  6. LENALIDOMIDE [Suspect]
     Active Substance: LENALIDOMIDE
     Dosage: 15 MG
     Route: 048
     Dates: start: 20221108, end: 20221108
  7. DEXAMETHASONE [Concomitant]
     Active Substance: DEXAMETHASONE
     Indication: Plasma cell myeloma
     Dosage: 8 MG
     Route: 042
     Dates: start: 20190902, end: 20190902
  8. DEXAMETHASONE [Concomitant]
     Active Substance: DEXAMETHASONE
     Dosage: 8 MG
     Route: 042
     Dates: start: 20221102, end: 20221102

REACTIONS (1)
  - Myelodysplastic syndrome [Not Recovered/Not Resolved]

NARRATIVE: CASE EVENT DATE: 20221125
